FAERS Safety Report 21946240 (Version 2)
Quarter: 2023Q1

REPORT INFORMATION
  Report Type: Spontaneous
  Country: JP (occurrence: JP)
  Receive Date: 20230202
  Receipt Date: 20230310
  Transmission Date: 20230418
  Serious: Yes (Hospitalization, Other)
  Sender: FDA-Public Use
  Company Number: JP-BRISTOL-MYERS SQUIBB COMPANY-BMS-2021-073460

PATIENT
  Age: 70 Year
  Sex: Male

DRUGS (9)
  1. YERVOY [Suspect]
     Active Substance: IPILIMUMAB
     Indication: Non-small cell lung cancer recurrent
     Dosage: UNK
     Route: 041
  2. OPDIVO [Suspect]
     Active Substance: NIVOLUMAB
     Indication: Non-small cell lung cancer recurrent
     Route: 041
  3. CARBOPLATIN [Suspect]
     Active Substance: CARBOPLATIN
     Indication: Non-small cell lung cancer recurrent
     Dosage: UNK
     Dates: start: 20210615, end: 20210706
  4. CARBOPLATIN [Suspect]
     Active Substance: CARBOPLATIN
     Dosage: UNK
     Dates: start: 20210706, end: 20210706
  5. CARBOPLATIN [Suspect]
     Active Substance: CARBOPLATIN
     Dosage: UNK
     Dates: start: 20210705, end: 20210705
  6. PEMETREXED [Suspect]
     Active Substance: PEMETREXED
     Indication: Non-small cell lung cancer recurrent
     Dates: start: 20210615, end: 20210615
  7. PEMETREXED [Suspect]
     Active Substance: PEMETREXED
     Dates: start: 20210706, end: 20210706
  8. PEMETREXED [Suspect]
     Active Substance: PEMETREXED
     Dates: start: 20210705, end: 20210705
  9. ATORVASTATIN [Concomitant]
     Active Substance: ATORVASTATIN
     Indication: Product used for unknown indication

REACTIONS (9)
  - Eczema [Unknown]
  - Decreased appetite [Unknown]
  - Adrenal insufficiency [Recovering/Resolving]
  - Cachexia [Unknown]
  - Dermatitis [Recovering/Resolving]
  - Dyspepsia [Not Recovered/Not Resolved]
  - Movement disorder [Unknown]
  - Amimia [Unknown]
  - Dehydration [Unknown]

NARRATIVE: CASE EVENT DATE: 20210620
